FAERS Safety Report 7274899-8 (Version None)
Quarter: 2010Q4

REPORT INFORMATION
  Report Type: 
  Country: None (occurrence: None)
  Receive Date: 20101130
  Receipt Date: 20100204
  Transmission Date: 20110411
  Serious: Yes (Hospitalization)
  Sender: FDA-Public Use
  Company Number: 2010SP007156

PATIENT
  Age: 22 Year
  Sex: Female
  Weight: 63.5036 kg

DRUGS (4)
  1. NUVARING [Suspect]
     Indication: CONTRACEPTION
     Dosage: 1 DF
     Dates: start: 20070901, end: 20071101
  2. NUVARING [Suspect]
     Indication: DYSMENORRHOEA
     Dosage: 1 DF
     Dates: start: 20070901, end: 20071101
  3. IBUPROFEN [Concomitant]
  4. ALBUTEROL [Concomitant]

REACTIONS (3)
  - ANXIETY [None]
  - HEADACHE [None]
  - PULMONARY EMBOLISM [None]
